FAERS Safety Report 9485331 (Version 3)
Quarter: 2015Q1

REPORT INFORMATION
  Report Type: Report from Study
  Country: JP (occurrence: JP)
  Receive Date: 20130828
  Receipt Date: 20150128
  Transmission Date: 20150721
  Serious: Yes (Death, Life-Threatening, Hospitalization, Other)
  Sender: FDA-Public Use
  Company Number: JP-GILEAD-2013-0081932

PATIENT
  Age: 60 Year
  Sex: Male

DRUGS (8)
  1. EMTRICITABINE/TENOFOVIR DISOPROXIL FUMARATE [Suspect]
     Active Substance: EMTRICITABINE\TENOFOVIR DISOPROXIL
     Indication: HIV INFECTION
     Dosage: 1 DF, QD
     Route: 048
     Dates: start: 20120221, end: 20120922
  2. DESYREL [Concomitant]
     Active Substance: TRAZODONE HYDROCHLORIDE
     Indication: ANGER
     Dosage: 1 DF, QD
     Route: 048
     Dates: start: 20120608, end: 20120922
  3. ISENTRESS [Suspect]
     Active Substance: RALTEGRAVIR POTASSIUM
     Indication: HIV INFECTION
     Dosage: 800 MG, QD
     Route: 048
     Dates: start: 20120111, end: 20120922
  4. EMTRICITABINE/TENOFOVIR DISOPROXIL FUMARATE [Suspect]
     Active Substance: EMTRICITABINE\TENOFOVIR DISOPROXIL
     Dosage: 1 DF, QD
     Route: 048
     Dates: start: 20111115, end: 20111123
  5. ITRIZOLE [Concomitant]
     Active Substance: ITRACONAZOLE
     Dosage: 200 MG, QD
     Route: 041
     Dates: start: 20120830, end: 20120921
  6. ISENTRESS [Suspect]
     Active Substance: RALTEGRAVIR POTASSIUM
     Dosage: 800 MG, QD
     Route: 048
     Dates: start: 20111115, end: 20111124
  7. SAMTIREL [Suspect]
     Active Substance: ATOVAQUONE
     Indication: PNEUMOCYSTIS JIROVECII PNEUMONIA
     Dosage: 750 MG, BID
     Route: 048
     Dates: start: 20120612, end: 20120922
  8. ITRIZOLE [Concomitant]
     Active Substance: ITRACONAZOLE
     Indication: BRONCHOPULMONARY ASPERGILLOSIS
     Dosage: 400 MG, QD
     Route: 041
     Dates: start: 20120828, end: 20120829

REACTIONS (6)
  - Haemoglobin decreased [Not Recovered/Not Resolved]
  - Bronchopulmonary aspergillosis [Fatal]
  - Respiratory failure [Fatal]
  - Platelet count decreased [Not Recovered/Not Resolved]
  - C-reactive protein increased [Not Recovered/Not Resolved]
  - Blood lactate dehydrogenase increased [Not Recovered/Not Resolved]

NARRATIVE: CASE EVENT DATE: 20120918
